FAERS Safety Report 9557803 (Version 2)
Quarter: 2013Q4

REPORT INFORMATION
  Report Type: Spontaneous
  Country: DE (occurrence: None)
  Receive Date: 20130912
  Receipt Date: 20131112
  Transmission Date: 20140711
  Serious: Yes (Other)
  Sender: FDA-Public Use
  Company Number: 2013037876

PATIENT
  Age: 63 Day
  Sex: Male

DRUGS (2)
  1. PRIVIGEN [Suspect]
     Indication: HYPERGAMMAGLOBULINAEMIA BENIGN MONOCLONAL
     Dosage: INFUSION RATE 1-2 ML/MIN 20 GM QD
     Route: 042
     Dates: start: 20130705, end: 20130705
  2. PRIVIGEN [Suspect]
     Indication: WALDENSTROM^S MACROGLOBULINAEMIA
     Dosage: INFUSION RATE 1-2 ML/MIN 20 GM QD
     Route: 042
     Dates: start: 20130705, end: 20130705

REACTIONS (4)
  - Circulatory collapse [None]
  - Blood pressure decreased [None]
  - Heart rate decreased [None]
  - Off label use [None]
